FAERS Safety Report 19798652 (Version 1)
Quarter: 2021Q3

REPORT INFORMATION
  Report Type: Spontaneous
  Country: US (occurrence: US)
  Receive Date: 20210902
  Receipt Date: 20210902
  Transmission Date: 20211014
  Serious: No
  Sender: FDA-Public Use
  Company Number: None

PATIENT
  Age: 73 Year
  Sex: Male
  Weight: 89.36 kg

DRUGS (3)
  1. TALTZ [Suspect]
     Active Substance: IXEKIZUMAB
     Indication: SPINAL OSTEOARTHRITIS
  2. TALTZ [Suspect]
     Active Substance: IXEKIZUMAB
     Indication: OSTEOARTHRITIS
     Dosage: ?          OTHER DOSE:80MG (1PEN);?
     Route: 058
     Dates: start: 202104
  3. TALTZ [Suspect]
     Active Substance: IXEKIZUMAB
     Indication: CONGENITAL ANOMALY

REACTIONS (1)
  - Upper respiratory tract infection [None]
